FAERS Safety Report 20831141 (Version 8)
Quarter: 2023Q1

REPORT INFORMATION
  Report Type: Report from Study
  Country: US (occurrence: US)
  Receive Date: 20220515
  Receipt Date: 20230210
  Transmission Date: 20230417
  Serious: Yes (Hospitalization, Other)
  Sender: FDA-Public Use
  Company Number: US-ABBVIE-22K-163-4394260-00

PATIENT
  Sex: Male
  Weight: 97 kg

DRUGS (30)
  1. IMBRUVICA [Suspect]
     Active Substance: IBRUTINIB
     Indication: White blood cell count abnormal
     Dosage: FORM STRENGTH UNITS: MILLIGRAM
     Route: 048
     Dates: start: 20180630
  2. IMBRUVICA [Suspect]
     Active Substance: IBRUTINIB
     Indication: White blood cell count abnormal
     Dosage: FORM STRENGTH UNITS: MILLIGRAM; LAST ADMIN DATE 2022
     Route: 048
     Dates: start: 202001
  3. IMBRUVICA [Suspect]
     Active Substance: IBRUTINIB
     Indication: White blood cell count abnormal
     Route: 048
     Dates: start: 20181001, end: 2019
  4. IMBRUVICA [Suspect]
     Active Substance: IBRUTINIB
     Indication: White blood cell count abnormal
     Route: 048
  5. MODERNA COVID-19 VACCINE [Suspect]
     Active Substance: ELASOMERAN
     Indication: COVID-19 immunisation
     Dosage: TIME INTERVAL: 1 TOTAL: FIRST DOSE
     Route: 030
     Dates: start: 2021, end: 2021
  6. MODERNA COVID-19 VACCINE [Suspect]
     Active Substance: ELASOMERAN
     Indication: COVID-19 immunisation
     Dosage: TIME INTERVAL: 1 TOTAL: SECOND DOSE
     Route: 030
     Dates: start: 2021, end: 2021
  7. MODERNA COVID-19 VACCINE [Suspect]
     Active Substance: ELASOMERAN
     Indication: COVID-19 immunisation
     Dosage: TIME INTERVAL: 1 TOTAL: THIRD DOSE OR BOOSTER DOSE
     Route: 030
     Dates: start: 202110, end: 202110
  8. HYDRALAZINE [Concomitant]
     Active Substance: HYDRALAZINE HYDROCHLORIDE
     Indication: Product used for unknown indication
     Dosage: FREQUENCY TEXT: 3  DAILY, 8 HRS
     Dates: start: 20221009
  9. GABAPENTIN [Concomitant]
     Active Substance: GABAPENTIN
     Indication: Product used for unknown indication
     Dosage: 100 MG/PRN
  10. VITAMIN B12 [Concomitant]
     Active Substance: CYANOCOBALAMIN
     Indication: Product used for unknown indication
     Dosage: 5,000 MCG, FREQUENCY TEXT: 1 DAILY, A.M.?DISSOLVABLE
  11. VITAMINS [Concomitant]
     Active Substance: VITAMINS
     Indication: Product used for unknown indication
     Dosage: ONCE DAILY, A.M
  12. PSYLLIUM [Concomitant]
     Active Substance: PLANTAGO SEED
     Indication: Product used for unknown indication
     Dosage: FREQUENCY TEXT: 1/ 2  DAILY OR AS NEEDED
  13. ASPIRIN [Concomitant]
     Active Substance: ASPIRIN
     Indication: Product used for unknown indication
     Dosage: FREQUENCY TEXT: 1 DAILY
  14. OXYCODONE [Concomitant]
     Active Substance: OXYCODONE
     Indication: Product used for unknown indication
     Dosage: 5-325 MG/PRN
  15. TAMSULOSIN [Concomitant]
     Active Substance: TAMSULOSIN
     Indication: Product used for unknown indication
     Dosage: FREQUENCY TEXT: 1 DAILY, P.M.
  16. CRESTOR [Concomitant]
     Active Substance: ROSUVASTATIN CALCIUM
     Indication: Product used for unknown indication
     Dosage: FREQUENCY TEXT: 1 DAILY, P.M.
  17. COENZYME Q10 [Concomitant]
     Active Substance: DIETARY SUPPLEMENT\UBIDECARENONE
     Indication: Product used for unknown indication
     Dosage: FREQUENCY TEXT:  3 WEEK WITH CRESTOR
  18. HERBALS\SAW PALMETTO [Concomitant]
     Active Substance: HERBALS\SAW PALMETTO
     Indication: Product used for unknown indication
     Dosage: FREQUENCY TEXT: 1 DAILY, A.M.?EXTRACT
  19. PROPRANOLOL [Concomitant]
     Active Substance: PROPRANOLOL HYDROCHLORIDE
     Indication: Product used for unknown indication
     Dosage: FREQUENCY TEXT: TWICE DAILY, A.M.
     Dates: start: 20221009
  20. METFORMIN HYDROCHLORIDE [Concomitant]
     Active Substance: METFORMIN HYDROCHLORIDE
     Indication: Product used for unknown indication
     Dosage: FREQUENCY TEXT: 1 DAILY, P.M.
  21. LISINOPRIL [Concomitant]
     Active Substance: LISINOPRIL
     Indication: Product used for unknown indication
     Dosage: START DATE TEXT: 3  DAILY, A.M.
  22. OMEPRAZOLE [Concomitant]
     Active Substance: OMEPRAZOLE
     Indication: Product used for unknown indication
     Dosage: FREQUENCY TEXT: ONCE DAILY, P.M
  23. FEXOFENADINE HYDROCHLORIDE [Concomitant]
     Active Substance: FEXOFENADINE HYDROCHLORIDE
     Indication: Product used for unknown indication
     Dosage: 18O MG/ PRN
  24. VITAMIN B COMPLEX [Concomitant]
     Active Substance: CYANOCOBALAMIN\DEXPANTHENOL\NIACINAMIDE\PYRIDOXINE HYDROCHLORIDE\RIBOFLAVIN 5^-PHOSPHATE SODIUM\THIA
     Indication: Product used for unknown indication
     Dosage: FREQUENCY TEXT: 1  DAILY, P.M.
  25. METOPROLOL [Concomitant]
     Active Substance: METOPROLOL
     Indication: Product used for unknown indication
     Dosage: FREQUENCY TEXT: 1 DAILY, P.M
     Dates: end: 20221009
  26. VITAMIN E [Concomitant]
     Active Substance: .ALPHA.-TOCOPHEROL
     Indication: Product used for unknown indication
     Dosage: 400 IU, ONCE DAILY, A.M.
  27. CALCIUM WITH D3 [Concomitant]
     Indication: Product used for unknown indication
     Dosage: 1 DAILY, P.M.
  28. FIBER [Concomitant]
     Indication: Product used for unknown indication
     Dosage: FREQUENCY TEXT: 1/ 2  DAILY OR AS NEEDED
  29. BIOTIN [Concomitant]
     Active Substance: BIOTIN
     Indication: Onychoclasis
  30. IMBRUVICA [Suspect]
     Active Substance: IBRUTINIB
     Indication: Chronic lymphocytic leukaemia
     Route: 048

REACTIONS (34)
  - Procedural haemorrhage [Recovered/Resolved]
  - Spinal operation [Recovered/Resolved]
  - COVID-19 [Recovered/Resolved]
  - Coronary artery bypass [Unknown]
  - Anaemia postoperative [Recovered/Resolved]
  - Dizziness [Unknown]
  - Shoulder operation [Recovered/Resolved]
  - COVID-19 [Recovered/Resolved]
  - Skin cancer [Recovered/Resolved]
  - Essential hypertension [Unknown]
  - Hypertension [Unknown]
  - White blood cell count increased [Unknown]
  - Rash erythematous [Recovered/Resolved with Sequelae]
  - Increased tendency to bruise [Not Recovered/Not Resolved]
  - Feeling abnormal [Unknown]
  - Tremor [Unknown]
  - Illness [Unknown]
  - Insomnia [Not Recovered/Not Resolved]
  - Contusion [Not Recovered/Not Resolved]
  - Chest pain [Unknown]
  - Tremor [Not Recovered/Not Resolved]
  - Chest discomfort [Unknown]
  - Ear pain [Recovering/Resolving]
  - Gait disturbance [Unknown]
  - Onychoclasis [Unknown]
  - Animal scratch [Unknown]
  - Obstructive sleep apnoea syndrome [Unknown]
  - Dizziness [Unknown]
  - Swelling [Unknown]
  - Palpitations [Unknown]
  - Headache [Unknown]
  - Central sleep apnoea syndrome [Unknown]
  - Erythema [Unknown]
  - Diarrhoea [Unknown]

NARRATIVE: CASE EVENT DATE: 20160101
